FAERS Safety Report 9184383 (Version 2)
Quarter: 2018Q3

REPORT INFORMATION
  Report Type: Spontaneous
  Country: US (occurrence: US)
  Receive Date: 20130322
  Receipt Date: 20180810
  Transmission Date: 20181010
  Serious: Yes (Other)
  Sender: FDA-Public Use
  Company Number: US-JNJFOC-20130307979

PATIENT

DRUGS (4)
  1. CISPLATIN. [Suspect]
     Active Substance: CISPLATIN
     Indication: MEDIASTINUM NEOPLASM
     Dosage: ADMINISTERED EVERY 21 DAYS FOR NO MORE THAN 6 CYCLES
     Route: 042
  2. CYCLOPHOSPHAMIDE. [Suspect]
     Active Substance: CYCLOPHOSPHAMIDE
     Indication: MEDIASTINUM NEOPLASM
     Dosage: ADMINISTERED EVERY 21 DAYS FOR NO MORE THAN 6 CYCLES
     Route: 042
  3. DOXORUBICIN [Suspect]
     Active Substance: DOXORUBICIN
     Indication: MEDIASTINUM NEOPLASM
     Dosage: ON DAYS 2, 3 INTRAVENOUS PUSH OVER 3?5 MINUTES
     Route: 042
  4. BELINOSTAT [Suspect]
     Active Substance: BELINOSTAT
     Indication: MEDIASTINUM NEOPLASM
     Route: 042

REACTIONS (15)
  - Diarrhoea [Unknown]
  - Embolism [Unknown]
  - Leukopenia [Unknown]
  - Anaemia [Unknown]
  - Aspartate aminotransferase increased [Unknown]
  - Thrombocytopenia [Unknown]
  - Hypomagnesaemia [Unknown]
  - Product use in unapproved indication [Unknown]
  - Electrocardiogram QT prolonged [Unknown]
  - Lymphopenia [Unknown]
  - Neutropenia [Unknown]
  - Hypophosphataemia [Unknown]
  - Off label use [Unknown]
  - Nausea [Unknown]
  - Hypokalaemia [Unknown]
